FAERS Safety Report 8382764-8 (Version None)
Quarter: 2012Q2

REPORT INFORMATION
  Report Type: 
  Country: None (occurrence: None)
  Receive Date: 20120524
  Receipt Date: 20120518
  Transmission Date: 20120825
  Serious: Yes (Other)
  Sender: FDA-Public Use
  Company Number: US-BAYER-2011-075534

PATIENT
  Age: 28 Year
  Sex: Female
  Weight: 73.968 kg

DRUGS (8)
  1. DOCUSATE SODIUM [Concomitant]
     Route: 048
  2. MULTI-VITAMINS [Concomitant]
  3. PEPCID [Concomitant]
  4. YAZ [Suspect]
     Indication: ACNE
  5. PERCOCET [Concomitant]
     Dosage: 325 MG, UNK
     Route: 048
  6. YAZ [Suspect]
     Indication: CONTRACEPTION
     Dosage: UNK
     Dates: start: 20050101, end: 20060101
  7. PERCOCET [Concomitant]
     Dosage: 6 MG, UNK
     Route: 048
  8. MOTRIN [Concomitant]
     Dosage: 800 MG, UNK
     Route: 048

REACTIONS (2)
  - GALLBLADDER INJURY [None]
  - CHOLECYSTITIS CHRONIC [None]
